FAERS Safety Report 9241772 (Version 1)
Quarter: 2013Q2

REPORT INFORMATION
  Report Type: Spontaneous
  Country: GB (occurrence: GB)
  Receive Date: 20130419
  Receipt Date: 20130419
  Transmission Date: 20140414
  Serious: Yes (Death)
  Sender: FDA-Public Use
  Company Number: GB-PFIZER INC-2013120255

PATIENT
  Sex: Female

DRUGS (3)
  1. LINEZOLID [Suspect]
     Indication: PNEUMONIA
  2. CLINDAMYCIN HCL [Suspect]
     Indication: PNEUMONIA
  3. RIFAMPICIN [Suspect]
     Indication: PNEUMONIA

REACTIONS (2)
  - Death [Fatal]
  - Antibiotic level below therapeutic [None]
